FAERS Safety Report 11420175 (Version 1)
Quarter: 2015Q3

REPORT INFORMATION
  Report Type: Spontaneous
  Country: US (occurrence: None)
  Receive Date: 20150825
  Receipt Date: 20150825
  Transmission Date: 20151125
  Serious: Yes (Hospitalization)
  Sender: FDA-Public Use
  Company Number: None

PATIENT
  Age: 24 Year
  Sex: Female
  Weight: 72.5 kg

DRUGS (1)
  1. SERTRALINE [Suspect]
     Active Substance: SERTRALINE HYDROCHLORIDE
     Indication: DEPRESSION
     Route: 048
     Dates: start: 20150303, end: 20150824

REACTIONS (6)
  - Feeling drunk [None]
  - Dizziness [None]
  - Malaise [None]
  - Tremor [None]
  - Tachycardia [None]
  - Withdrawal syndrome [None]

NARRATIVE: CASE EVENT DATE: 20150822
